FAERS Safety Report 7514708-2 (Version None)
Quarter: 2011Q2

REPORT INFORMATION
  Report Type: 
  Country: None (occurrence: None)
  Receive Date: 20110601
  Receipt Date: 20110516
  Transmission Date: 20111010
  Serious: Yes (Hospitalization, Other)
  Sender: FDA-Public Use
  Company Number: US-BAYER-201039022NA

PATIENT
  Age: 17 Year
  Sex: Female
  Weight: 79.365 kg

DRUGS (1)
  1. YASMIN [Suspect]
     Dosage: UNK UNK, QD
     Route: 048
     Dates: start: 20060101, end: 20090101

REACTIONS (2)
  - CHOLECYSTITIS [None]
  - GALLBLADDER NON-FUNCTIONING [None]
